FAERS Safety Report 23838538 (Version 1)
Quarter: 2024Q2

REPORT INFORMATION
  Report Type: Spontaneous
  Country: US (occurrence: None)
  Receive Date: 20240508
  Receipt Date: 20240508
  Transmission Date: 20240716
  Serious: No
  Sender: FDA-Public Use
  Company Number: None

PATIENT

DRUGS (1)
  1. CAPECITABINE [Suspect]
     Active Substance: CAPECITABINE

REACTIONS (6)
  - Nausea [None]
  - Vomiting [None]
  - Fatigue [None]
  - Constipation [None]
  - Visual impairment [None]
  - Hepatic cancer metastatic [None]

NARRATIVE: CASE EVENT DATE: 20240508
